FAERS Safety Report 9963409 (Version 4)
Quarter: 2014Q2

REPORT INFORMATION
  Report Type: Spontaneous
  Country: IT (occurrence: IT)
  Receive Date: 20140305
  Receipt Date: 20140408
  Transmission Date: 20141212
  Serious: Yes (Hospitalization, Other)
  Sender: FDA-Public Use
  Company Number: IT-TEVA-465959ISR

PATIENT
  Age: 39 Year
  Sex: Female

DRUGS (4)
  1. FLUOXETINE [Suspect]
     Indication: DRUG ABUSE
     Route: 048
     Dates: start: 20140218, end: 20140218
  2. FLUOXETINE [Suspect]
     Indication: SUICIDE ATTEMPT
  3. FLUOXETINE [Suspect]
     Indication: DEPRESSION
  4. EUTIROX 100 MCG [Concomitant]
     Indication: THYROIDECTOMY
     Route: 048
     Dates: start: 20080101, end: 20140221

REACTIONS (4)
  - Suicide attempt [Recovered/Resolved]
  - Drug abuse [Recovered/Resolved]
  - Asthenia [Recovered/Resolved]
  - Somnolence [Recovered/Resolved]
